FAERS Safety Report 6656295-7 (Version None)
Quarter: 2010Q1

REPORT INFORMATION
  Report Type: 
  Country: None (occurrence: None)
  Receive Date: 20100329
  Receipt Date: 20100319
  Transmission Date: 20100710
  Serious: Yes (Hospitalization)
  Sender: FDA-Public Use
  Company Number: GXKR2010GB03316

PATIENT
  Age: 42 Year
  Sex: Male

DRUGS (3)
  1. DICLOFENAC (NGX) [Suspect]
     Indication: PROCEDURAL PAIN
     Dosage: 50 MG, TID
     Route: 048
     Dates: start: 20100109, end: 20100127
  2. LANSOPRAZOLE [Suspect]
     Dosage: 30 MG, QD
     Route: 048
     Dates: start: 20100111, end: 20100212
  3. MYOZYME [Concomitant]
     Indication: GLYCOGEN STORAGE DISEASE TYPE II
     Dosage: 1400 MG, 1 /2WEEKS
     Route: 042

REACTIONS (2)
  - GALLBLADDER OEDEMA [None]
  - LIVER FUNCTION TEST ABNORMAL [None]
